FAERS Safety Report 6029375-7 (Version None)
Quarter: 2009Q1

REPORT INFORMATION
  Report Type: 
  Country: None (occurrence: None)
  Receive Date: 20090105
  Receipt Date: 20081226
  Transmission Date: 20090719
  Serious: Yes (Hospitalization)
  Sender: FDA-Public Use
  Company Number: 2008-04220

PATIENT
  Age: 71 Year
  Sex: Female
  Weight: 30 kg

DRUGS (9)
  1. VELCADE [Suspect]
     Indication: MULTIPLE MYELOMA
     Dosage: 1.4 MG, INTRAVENOUS
     Route: 042
     Dates: start: 20081009, end: 20081021
  2. SULFAMETHOXAZOLE AND TRIMETHOPRIM [Suspect]
     Indication: DRUG USE FOR UNKNOWN INDICATION
     Dosage: ORAL
     Route: 048
  3. OXYCONTIN [Suspect]
     Indication: CANCER PAIN
     Dosage: 10 MG, ORAL
     Route: 048
     Dates: start: 20081018, end: 20081023
  4. LANSOPRAZOLE [Concomitant]
  5. DIFLUCAN [Concomitant]
  6. CLARITHROMYCIN [Concomitant]
  7. ACETAMINOPHEN [Concomitant]
  8. AMOBAN (ZOPICLONE) [Concomitant]
  9. NOVAMIN (PROCHLORPERAZINE) [Concomitant]

REACTIONS (4)
  - BLOOD AMYLASE INCREASED [None]
  - CONSTIPATION [None]
  - ILEUS [None]
  - NEUTROPHIL COUNT DECREASED [None]
